FAERS Safety Report 6974986-5 (Version None)
Quarter: 2010Q3

REPORT INFORMATION
  Report Type: 
  Country: None (occurrence: None)
  Receive Date: 20100910
  Receipt Date: 20090121
  Transmission Date: 20110219
  Serious: No
  Sender: FDA-Public Use
  Company Number: US-WYE-H07814009

PATIENT
  Sex: Male
  Weight: 95.34 kg

DRUGS (3)
  1. PROTONIX [Suspect]
     Indication: GASTROOESOPHAGEAL REFLUX DISEASE
     Route: 048
     Dates: start: 20081201
  2. BENAZEPRIL HYDROCHLORIDE [Concomitant]
  3. ASPIRIN [Concomitant]

REACTIONS (2)
  - GASTRIC PH INCREASED [None]
  - MEDICATION RESIDUE [None]
